FAERS Safety Report 9132990 (Version 4)
Quarter: 2013Q4

REPORT INFORMATION
  Report Type: Spontaneous
  Country: US (occurrence: US)
  Receive Date: 20130301
  Receipt Date: 20131112
  Transmission Date: 20140711
  Serious: Yes (Hospitalization, Disabling, Other)
  Sender: FDA-Public Use
  Company Number: US-009507513-1303USA000357

PATIENT
  Sex: Female
  Weight: 122.45 kg

DRUGS (18)
  1. FOSAMAX [Suspect]
     Indication: OSTEOPENIA
     Dosage: 10 MG, QD
     Route: 048
     Dates: start: 20000208
  2. FOSAMAX [Suspect]
     Indication: OSTEOPOROSIS
     Dosage: 70 MG, WEEKLY
     Route: 048
  3. ALENDRONATE SODIUM [Suspect]
     Indication: OSTEOPENIA
     Dosage: 70 MG, WEEKLY
     Dates: start: 200811, end: 201102
  4. ASPIRIN [Concomitant]
     Dosage: 81-325 MG DAILY
     Route: 048
     Dates: start: 1990
  5. VITAMINS (UNSPECIFIED) [Concomitant]
     Dosage: 1 TABLET OR CAPSULE QD
     Route: 048
     Dates: start: 1990
  6. CALCIUM (UNSPECIFIED) (+) VITAMIN D (UNSPECIFIED) [Concomitant]
     Dosage: 1 DF, BID
     Dates: start: 1990
  7. GINGER [Concomitant]
     Dosage: UNK, BID
     Dates: start: 1990
  8. GARLIC [Concomitant]
     Dosage: 500 MG, BID
     Dates: start: 1990
  9. HYDROCHLOROTHIAZIDE (+) TRIAMTERENE [Concomitant]
     Dosage: 37.5/ 25 QD
     Route: 048
  10. COUMADIN [Concomitant]
     Dosage: 6 MG, QD
     Route: 048
  11. SYNTHROID [Concomitant]
     Dosage: 50-150 MICROGRAM, QD
     Route: 048
  12. ZANTAC [Concomitant]
     Dosage: 150 DF, HS
  13. SINEQUAN [Concomitant]
     Dosage: 25 DF, HS
  14. ATENOLOL [Concomitant]
     Dosage: 50-100 MG DAILY
     Route: 048
  15. DETROL LA [Concomitant]
     Dosage: 2 MG, BID
     Route: 048
  16. QUININE SULFATE [Concomitant]
     Indication: MUSCLE SPASMS
     Dosage: 260 MG, HS PRN
  17. FLURBIPROFEN [Concomitant]
     Indication: OSTEOARTHRITIS
     Dosage: 100 MG, DAILY
  18. ANSAID [Concomitant]
     Indication: BACK PAIN

REACTIONS (34)
  - Open reduction of fracture [Unknown]
  - Low turnover osteopathy [Not Recovered/Not Resolved]
  - Invasive ductal breast carcinoma [Unknown]
  - Simple mastectomy [Unknown]
  - Hernia repair [Unknown]
  - Cholecystectomy [Unknown]
  - Renal failure [Unknown]
  - Myocardial infarction [Unknown]
  - Femur fracture [Recovering/Resolving]
  - Dyslipidaemia [Unknown]
  - Pain [Unknown]
  - Infection [Unknown]
  - Chest pain [Unknown]
  - Depression [Unknown]
  - Fracture nonunion [Unknown]
  - Paranasal sinus hypersecretion [Unknown]
  - Proteus test positive [Unknown]
  - Seroma [Unknown]
  - Abdominal hernia [Unknown]
  - Hypokalaemia [Recovering/Resolving]
  - Cardiomegaly [Unknown]
  - Nodule [Unknown]
  - Osteoarthritis [Unknown]
  - Dyspnoea [Unknown]
  - Spondylolisthesis [Unknown]
  - Paraesthesia [Unknown]
  - Lymphoedema [Not Recovered/Not Resolved]
  - Hysterectomy [Unknown]
  - Urinary incontinence [Unknown]
  - Osteoarthritis [Not Recovered/Not Resolved]
  - Gait disturbance [Unknown]
  - Nervousness [Unknown]
  - Pulmonary fibrosis [Unknown]
  - Asthenia [Unknown]
